FAERS Safety Report 5855589-2 (Version None)
Quarter: 2008Q3

REPORT INFORMATION
  Report Type: 
  Country: None (occurrence: None)
  Receive Date: 20080821
  Receipt Date: 20080812
  Transmission Date: 20090109
  Serious: Yes (Hospitalization)
  Sender: FDA-Public Use
  Company Number: 2008BI016069

PATIENT
  Age: 51 Year
  Sex: Male
  Weight: 102.0593 kg

DRUGS (9)
  1. AVONEX [Suspect]
     Indication: MULTIPLE SCLEROSIS
     Dosage: 30 UG; QW; IM
     Route: 030
     Dates: start: 20020101
  2. NAPROXEN [Concomitant]
  3. PAXIL [Concomitant]
  4. NEXIUM [Concomitant]
  5. CLONOPIN [Concomitant]
  6. DARVOCET [Concomitant]
  7. ZERTEC [Concomitant]
  8. FLONASE [Concomitant]
  9. FLEXERIL [Concomitant]

REACTIONS (6)
  - INFLUENZA LIKE ILLNESS [None]
  - INTERVERTEBRAL DISC DEGENERATION [None]
  - INTERVERTEBRAL DISC PROTRUSION [None]
  - PAIN [None]
  - PROCEDURAL SITE REACTION [None]
  - SPINAL CORD COMPRESSION [None]
